FAERS Safety Report 8586260-4 (Version None)
Quarter: 2012Q3

REPORT INFORMATION
  Report Type: 
  Country: None (occurrence: None)
  Receive Date: 20120810
  Receipt Date: 19920619
  Transmission Date: 20120928
  Serious: Yes (Other)
  Sender: FDA-Public Use
  Company Number: US-ROCHE-1097920

PATIENT
  Age: 51 Year
  Sex: Male

DRUGS (3)
  1. ACTIVASE [Suspect]
     Indication: ACUTE MYOCARDIAL INFARCTION
  2. NITRO DRIP [Concomitant]
     Dosage: 10 UG/MIN
  3. NITRO DRIP [Concomitant]
     Indication: PAIN
     Dosage: 5 UG/MIN.

REACTIONS (2)
  - INJECTION SITE HAEMORRHAGE [None]
  - CHEST PAIN [None]
